FAERS Safety Report 24160070 (Version 1)
Quarter: 2024Q3

REPORT INFORMATION
  Report Type: Spontaneous
  Country: CN (occurrence: CN)
  Receive Date: 20240801
  Receipt Date: 20240801
  Transmission Date: 20241017
  Serious: Yes (Hospitalization, Other)
  Sender: NOVITIUM PHARMA
  Company Number: CN-NOVITIUMPHARMA-2024CNNVP01423

PATIENT
  Age: 8 Year
  Sex: Female

DRUGS (8)
  1. DEXAMETHASONE [Suspect]
     Active Substance: DEXAMETHASONE
     Indication: Haemophagocytic lymphohistiocytosis
  2. DEXAMETHASONE [Suspect]
     Active Substance: DEXAMETHASONE
     Indication: Epstein-Barr virus infection
  3. ETOPOSIDE [Concomitant]
     Active Substance: ETOPOSIDE
     Indication: Haemophagocytic lymphohistiocytosis
  4. ETOPOSIDE [Concomitant]
     Active Substance: ETOPOSIDE
     Indication: Epstein-Barr virus infection
  5. RUXOLITINIB [Concomitant]
     Active Substance: RUXOLITINIB
     Indication: Cytokine storm
     Route: 048
  6. RUXOLITINIB [Concomitant]
     Active Substance: RUXOLITINIB
  7. EMAPALUMAB [Concomitant]
     Active Substance: EMAPALUMAB
     Indication: Haemophagocytic lymphohistiocytosis
  8. EMAPALUMAB [Concomitant]
     Active Substance: EMAPALUMAB
     Indication: Epstein-Barr virus infection

REACTIONS (3)
  - Aspergillus infection [Recovering/Resolving]
  - Acinetobacter infection [Recovering/Resolving]
  - Multiple organ dysfunction syndrome [Unknown]
